FAERS Safety Report 20050996 (Version 2)
Quarter: 2022Q1

REPORT INFORMATION
  Report Type: Report from Study
  Country: FR (occurrence: FR)
  Receive Date: 20211110
  Receipt Date: 20220207
  Transmission Date: 20220423
  Serious: Yes (Other)
  Sender: FDA-Public Use
  Company Number: FR-AVERITAS PHARMA-2021-271490

PATIENT
  Age: 54 Year
  Sex: Female

DRUGS (2)
  1. QUTENZA [Suspect]
     Active Substance: CAPSAICIN
     Indication: Neuralgia
     Dosage: 1 DOSAGE FORM
     Route: 062
  2. QUTENZA [Suspect]
     Active Substance: CAPSAICIN
     Indication: Exostosis

REACTIONS (4)
  - Asthmatic crisis [Recovered/Resolved]
  - Dermatitis atopic [Recovered/Resolved]
  - Pruritus [Recovered/Resolved]
  - Wrong technique in product usage process [Recovered/Resolved]
